APPROVED DRUG PRODUCT: CLOTRIMAZOLE AND BETAMETHASONE DIPROPIONATE
Active Ingredient: BETAMETHASONE DIPROPIONATE; CLOTRIMAZOLE
Strength: EQ 0.05% BASE;1%
Dosage Form/Route: LOTION;TOPICAL
Application: A076516 | Product #001 | TE Code: AB
Applicant: FOUGERA PHARMACEUTICALS INC
Approved: Jun 16, 2005 | RLD: No | RS: No | Type: RX